FAERS Safety Report 10944603 (Version 2)
Quarter: 2015Q2

REPORT INFORMATION
  Report Type: Spontaneous
  Country: US (occurrence: US)
  Receive Date: 20150323
  Receipt Date: 20150402
  Transmission Date: 20150821
  Serious: Yes (Other)
  Sender: FDA-Public Use
  Company Number: US-PFIZER INC-2015096586

PATIENT
  Age: 72 Year
  Sex: Male
  Weight: 85 kg

DRUGS (19)
  1. CALCIUM + VIT D [Concomitant]
     Active Substance: CALCIUM\VITAMIN D
     Dosage: CALCIUM CARBONATE 600 MG/ COLECALCIFEROL 100 MG, 1X/DAY
     Route: 048
  2. CLOPIDOGREL BISULFATE. [Concomitant]
     Active Substance: CLOPIDOGREL BISULFATE
     Dosage: 75 MG, DAILY (75 MG TABLET(S) TAKE 1 DAILY)
     Route: 048
  3. SIMVASTATIN. [Concomitant]
     Active Substance: SIMVASTATIN
     Dosage: 5 MG, 1X/DAY
     Route: 048
  4. SUTENT [Suspect]
     Active Substance: SUNITINIB MALATE
     Dosage: 50 MG, CYCLIC 2 WEEKS ON AND 1 WEEK OFF
     Dates: start: 20140610
  5. CARVEDILOL. [Concomitant]
     Active Substance: CARVEDILOL
     Dosage: 6.25 MG, 2X/DAY (6.25 MG TABLET(S) TAKE 1 BID)
     Route: 048
  6. DIPHENOXYLATE-ATROPINE [Concomitant]
     Dosage: DIPHENOXYLATE HYDROCHLORIDE 2.5 MG /ATROPINE SULFATE 0.025MG , 1X/DAY AS NEEDED
     Route: 048
  7. DOXAZOSIN MESYLATE. [Concomitant]
     Active Substance: DOXAZOSIN MESYLATE
     Dosage: 2 MG, 1X/DAY (IN THE MORNING)
     Route: 048
  8. OMEPRAZOLE. [Concomitant]
     Active Substance: OMEPRAZOLE
     Dosage: 40 MG, DAILY (40 MG CAPSULE(S), ENTERIC COATED TAKE 1 PO DAILY)
     Route: 048
  9. ZOFRAN [Concomitant]
     Active Substance: ONDANSETRON HYDROCHLORIDE
     Indication: NAUSEA
     Dosage: 4 MG, AS NEEDED (4 MG TABLET(S) TAKE 1 PO Q4H PRN)
     Route: 048
  10. IMODIUM A-D [Concomitant]
     Active Substance: LOPERAMIDE HYDROCHLORIDE
     Dosage: UNK
     Route: 048
  11. VITAMIN D2 [Concomitant]
     Active Substance: ERGOCALCIFEROL
     Dosage: 5000 IU, WEEKLY 50000 UNIT CAPSULE(S) TAKE 1 PO Q7D()
     Route: 048
  12. SUTENT [Suspect]
     Active Substance: SUNITINIB MALATE
     Indication: METASTATIC RENAL CELL CARCINOMA
     Dosage: 50 MG, CYCLIC 4 WEEKS ON AND 2 WEEKS OFF
     Route: 048
     Dates: start: 201401
  13. TAMSULOSIN HYDROCHLORIDE. [Concomitant]
     Active Substance: TAMSULOSIN HYDROCHLORIDE
     Dosage: 0.4 MG, 1X/DAY
     Route: 048
  14. MORPHINE SULFATE. [Concomitant]
     Active Substance: MORPHINE SULFATE
     Dosage: 30 MG, 2X/DAY (30 MG TABLET(S), SUSTAINED ACTION TAKE 1 PO Q12H)
     Route: 048
  15. ONDANSETRON HYDROCHLORIDE. [Concomitant]
     Active Substance: ONDANSETRON HYDROCHLORIDE
     Dosage: UNK
  16. XGEVA [Suspect]
     Active Substance: DENOSUMAB
     Indication: METASTASES TO BONE
     Dosage: UNK
     Dates: end: 20141020
  17. TYLENOL [Concomitant]
     Active Substance: ACETAMINOPHEN
     Dosage: 625 MG, AS NEEDED
     Route: 048
  18. SUTENT [Suspect]
     Active Substance: SUNITINIB MALATE
     Dosage: 37.5 MG, CYCLIC 2 WEEKS ON AND 1 WEEK OFF
     Route: 048
     Dates: start: 201501, end: 20150227
  19. AMLODIPINE BESYLATE. [Concomitant]
     Active Substance: AMLODIPINE BESYLATE
     Dosage: 5 MG, AS NEEDED
     Route: 048

REACTIONS (12)
  - Nocturia [Recovering/Resolving]
  - Oedema peripheral [Recovering/Resolving]
  - Disease progression [Unknown]
  - Back pain [Recovering/Resolving]
  - Polyuria [Recovering/Resolving]
  - Oral pain [Unknown]
  - Metastatic renal cell carcinoma [Unknown]
  - Decreased appetite [Unknown]
  - Haematuria [Unknown]
  - Dizziness [Unknown]
  - Osteonecrosis of jaw [Unknown]
  - Weight decreased [Unknown]

NARRATIVE: CASE EVENT DATE: 2014
